FAERS Safety Report 13875546 (Version 1)
Quarter: 2017Q3

REPORT INFORMATION
  Report Type: Spontaneous
  Country: US (occurrence: US)
  Receive Date: 20170817
  Receipt Date: 20170817
  Transmission Date: 20171127
  Serious: No
  Sender: FDA-Public Use
  Company Number: US-BRISTOL-MYERS SQUIBB COMPANY-BMS-2017-071943

PATIENT
  Sex: Female
  Weight: 81.63 kg

DRUGS (1)
  1. KENALOG-10 [Suspect]
     Active Substance: TRIAMCINOLONE ACETONIDE
     Indication: PAIN IN EXTREMITY
     Dosage: THREE
     Route: 026
     Dates: start: 20160801

REACTIONS (2)
  - Menorrhagia [Unknown]
  - Product use in unapproved indication [Unknown]
